FAERS Safety Report 17825919 (Version 1)
Quarter: 2020Q2

REPORT INFORMATION
  Report Type: Spontaneous
  Country: KR (occurrence: KR)
  Receive Date: 20200526
  Receipt Date: 20200526
  Transmission Date: 20200714
  Serious: Yes (Other)
  Sender: FDA-Public Use
  Company Number: KR-ASTRAZENECA-2020SE53898

PATIENT
  Age: 50 Year
  Sex: Male

DRUGS (3)
  1. IMFINZI [Suspect]
     Active Substance: DURVALUMAB
     Dosage: UNKNOWN
     Route: 042
     Dates: start: 20191106
  2. IMFINZI [Suspect]
     Active Substance: DURVALUMAB
     Dosage: UNKNOWN
     Route: 042
     Dates: start: 20190411
  3. PREDNISOLONE. [Concomitant]
     Active Substance: PREDNISOLONE
     Dosage: 40.0MG UNKNOWN

REACTIONS (4)
  - Blood thyroid stimulating hormone increased [Unknown]
  - Weight increased [Unknown]
  - Thyroglobulin increased [Unknown]
  - Anti-thyroid antibody positive [Unknown]

NARRATIVE: CASE EVENT DATE: 20190925
